FAERS Safety Report 13681910 (Version 1)
Quarter: 2017Q2

REPORT INFORMATION
  Report Type: Spontaneous
  Country: US (occurrence: US)
  Receive Date: 20170623
  Receipt Date: 20170623
  Transmission Date: 20170830
  Serious: Yes (Death, Life-Threatening, Hospitalization, Disabling, Congenital Anomaly, Other)
  Sender: FDA-Public Use
  Company Number: None

PATIENT
  Age: 54 Year
  Sex: Male
  Weight: 81.72 kg

DRUGS (15)
  1. AMPICILINA [Concomitant]
     Active Substance: AMPICILLIN
  2. VITAMIN [Concomitant]
     Active Substance: VITAMINS
  3. INVOKANA [Suspect]
     Active Substance: CANAGLIFLOZIN
     Indication: BLOOD GLUCOSE INCREASED
     Route: 048
     Dates: start: 20170531, end: 20170608
  4. TEMAZEPAM. [Concomitant]
     Active Substance: TEMAZEPAM
  5. FENOFIBRATE. [Concomitant]
     Active Substance: FENOFIBRATE
  6. TEA [Concomitant]
     Active Substance: TEA LEAF
  7. LISINOPRIL. [Concomitant]
     Active Substance: LISINOPRIL
  8. NITROSTAT [Concomitant]
     Active Substance: NITROGLYCERIN
  9. AFRIN [Concomitant]
     Active Substance: OXYMETAZOLINE
  10. VITAFUSION [Concomitant]
  11. CARVEDILOL. [Concomitant]
     Active Substance: CARVEDILOL
  12. ATORVASTATIN [Concomitant]
     Active Substance: ATORVASTATIN
  13. SPIRONOLACTONE. [Concomitant]
     Active Substance: SPIRONOLACTONE
  14. VITAFUSION GUMMY [Concomitant]
  15. ASPIRIN. [Concomitant]
     Active Substance: ASPIRIN

REACTIONS (7)
  - Malaise [None]
  - Blindness [None]
  - Blood glucose increased [None]
  - Blood glucose decreased [None]
  - Asthenia [None]
  - Fatigue [None]
  - Back pain [None]

NARRATIVE: CASE EVENT DATE: 20130608
